FAERS Safety Report 17610417 (Version 4)
Quarter: 2020Q3

REPORT INFORMATION
  Report Type: Spontaneous
  Country: US (occurrence: US)
  Receive Date: 20200401
  Receipt Date: 20200721
  Transmission Date: 20201102
  Serious: No
  Sender: FDA-Public Use
  Company Number: US-PFIZER INC-2019087984

PATIENT
  Age: 48 Year
  Sex: Female

DRUGS (2)
  1. PREMPRO [Suspect]
     Active Substance: ESTROGENS, CONJUGATED\MEDROXYPROGESTERONE ACETATE
     Indication: MENOPAUSAL SYMPTOMS
     Dosage: 1 DF, DAILY (0.625?2.5MG)(ONE TABLET BY MOUTH)
     Route: 048
  2. PREMPRO [Suspect]
     Active Substance: ESTROGENS, CONJUGATED\MEDROXYPROGESTERONE ACETATE
     Indication: NEUROPATHIC ARTHROPATHY
     Dosage: 1 DF, DAILY (0.45?1.5 MG)(ONE TABLET BY MOUTH)
     Route: 048

REACTIONS (1)
  - Body temperature fluctuation [Unknown]
